FAERS Safety Report 26172117 (Version 1)
Quarter: 2025Q4

REPORT INFORMATION
  Report Type: Spontaneous
  Country: IR (occurrence: IR)
  Receive Date: 20251218
  Receipt Date: 20251218
  Transmission Date: 20260117
  Serious: Yes (Hospitalization, Disabling, Other)
  Sender: Pangea Pharmaceuticals
  Company Number: IR-PANGEAPHARMA-2025PAN00010

PATIENT
  Age: 30 Year
  Sex: Male

DRUGS (14)
  1. DEXAMETHASONE [Suspect]
     Active Substance: DEXAMETHASONE
     Indication: Weight decreased
  2. DEXAMETHASONE [Suspect]
     Active Substance: DEXAMETHASONE
     Indication: Facial wasting
  3. DEXAMETHASONE [Suspect]
     Active Substance: DEXAMETHASONE
     Indication: Skin hyperpigmentation
  4. DEXAMETHASONE [Suspect]
     Active Substance: DEXAMETHASONE
     Indication: Ergotherapy
  5. METHADONE [Concomitant]
     Active Substance: METHADONE HYDROCHLORIDE
     Indication: Product used for unknown indication
  6. CYPROHEPTADINE [Concomitant]
     Active Substance: CYPROHEPTADINE
     Indication: Product used for unknown indication
  7. ASPIRIN [Concomitant]
     Active Substance: ASPIRIN
  8. ASPIRIN [Concomitant]
     Active Substance: ASPIRIN
  9. APIXABAN [Concomitant]
     Active Substance: APIXABAN
  10. APIXABAN [Concomitant]
     Active Substance: APIXABAN
  11. MELOXICAM [Concomitant]
     Active Substance: MELOXICAM
  12. MELOXICAM [Concomitant]
     Active Substance: MELOXICAM
  13. BUPRENORPHINE [Concomitant]
     Active Substance: BUPRENORPHINE
     Indication: Substance use
  14. TRAMADOL [Concomitant]
     Active Substance: TRAMADOL
     Indication: Substance use

REACTIONS (4)
  - Intentional product misuse [Unknown]
  - Intermittent claudication [Recovering/Resolving]
  - Osteonecrosis [Recovering/Resolving]
  - Depression [Recovering/Resolving]
